FAERS Safety Report 19156065 (Version 1)
Quarter: 2021Q2

REPORT INFORMATION
  Report Type: Spontaneous
  Country: DE (occurrence: DE)
  Receive Date: 20210419
  Receipt Date: 20210419
  Transmission Date: 20210717
  Serious: Yes (Other)
  Sender: FDA-Public Use
  Company Number: DE-ANIPHARMA-2021-DE-000075

PATIENT
  Sex: Male

DRUGS (2)
  1. ROSUVASTATIN. [Concomitant]
     Active Substance: ROSUVASTATIN
     Dosage: UNKNOWN DOSE EVERY DAY
     Dates: start: 202012
  2. CANDESARTAN CILEXETIL AND HYDROCHLOROTHIAZIDE [Suspect]
     Active Substance: CANDESARTAN CILEXETIL\HYDROCHLOROTHIAZIDE
     Indication: PRODUCT USED FOR UNKNOWN INDICATION
     Dosage: 8/12.5 MILLIGRAM, AT AN UNSPECIFIED DOSE ONCE A DAY
     Route: 048
     Dates: start: 202008

REACTIONS (2)
  - Cardiac disorder [Not Recovered/Not Resolved]
  - Cardiovascular insufficiency [Unknown]

NARRATIVE: CASE EVENT DATE: 202012
